FAERS Safety Report 4446447-9 (Version None)
Quarter: 2004Q3

REPORT INFORMATION
  Report Type: 
  Country: None (occurrence: None)
  Receive Date: 20040907
  Receipt Date: 20040825
  Transmission Date: 20050211
  Serious: Yes (Death, Other)
  Sender: FDA-Public Use
  Company Number: 2004059926

PATIENT
  Sex: Male

DRUGS (3)
  1. CEREBYX [Suspect]
     Indication: ILL-DEFINED DISORDER
     Dosage: INTRAVENOUS
     Route: 042
     Dates: start: 20040101, end: 20040101
  2. DILANTIN [Suspect]
     Indication: ILL-DEFINED DISORDER
     Dates: start: 20040101, end: 20040101
  3. DOPAMINE HCL [Concomitant]

REACTIONS (14)
  - ANURIA [None]
  - ARRHYTHMIA [None]
  - ATRIOVENTRICULAR BLOCK FIRST DEGREE [None]
  - BLOOD PRESSURE ABNORMAL [None]
  - BLOOD PRESSURE INCREASED [None]
  - BRADYCARDIA [None]
  - ELECTROCARDIOGRAM P WAVE ABNORMAL [None]
  - ELECTROCARDIOGRAM T WAVE ABNORMAL [None]
  - HYPERKALAEMIA [None]
  - METABOLIC ACIDOSIS [None]
  - OXYGEN SATURATION DECREASED [None]
  - RENAL FAILURE ACUTE [None]
  - RESPIRATORY DISTRESS [None]
  - SINUS TACHYCARDIA [None]
